FAERS Safety Report 6370411-6 (Version None)
Quarter: 2009Q3

REPORT INFORMATION
  Report Type: 
  Country: None (occurrence: None)
  Receive Date: 20090923
  Receipt Date: 20090917
  Transmission Date: 20100115
  Serious: Yes (Hospitalization, Other)
  Sender: FDA-Public Use
  Company Number: GB-NAPPMUNDI-GBR-2009-0005592

PATIENT
  Sex: Female

DRUGS (2)
  1. TARGINACT 20MG/10MG [Suspect]
     Indication: DRUG USE FOR UNKNOWN INDICATION
  2. OXYCONTIN [Suspect]
     Indication: DRUG USE FOR UNKNOWN INDICATION

REACTIONS (2)
  - HOSPITALISATION [None]
  - WITHDRAWAL SYNDROME [None]
